FAERS Safety Report 12465424 (Version 3)
Quarter: 2016Q3

REPORT INFORMATION
  Report Type: Spontaneous
  Country: US (occurrence: US)
  Receive Date: 20160614
  Receipt Date: 20160809
  Transmission Date: 20161109
  Serious: Yes (Hospitalization)
  Sender: FDA-Public Use
  Company Number: US-SA-2016SA108859

PATIENT
  Age: 80 Year
  Sex: Male
  Weight: 89.8 kg

DRUGS (3)
  1. FLEXPEN [Suspect]
     Active Substance: UNSPECIFIED INGREDIENT
  2. LANTUS [Suspect]
     Active Substance: INSULIN GLARGINE
     Indication: DIABETES MELLITUS
     Dosage: DOSE:54 UNIT(S)
     Route: 065
  3. HUMALOG [Concomitant]
     Active Substance: INSULIN LISPRO
     Dosage: VIAL

REACTIONS (2)
  - Cardiac failure congestive [Unknown]
  - Wrong device used [Unknown]

NARRATIVE: CASE EVENT DATE: 201605
